FAERS Safety Report 5959154-8 (Version None)
Quarter: 2008Q4

REPORT INFORMATION
  Report Type: 
  Country: None (occurrence: None)
  Receive Date: 20081120
  Receipt Date: 20080327
  Transmission Date: 20090506
  Serious: No
  Sender: FDA-Public Use
  Company Number: A0717854A

PATIENT
  Age: 10 Year
  Sex: Male

DRUGS (4)
  1. WELLBUTRIN SR [Suspect]
     Indication: DEPRESSION
     Dosage: 150MG PER DAY
     Route: 048
  2. HYOSCYAMINE [Concomitant]
  3. ZOLOFT [Concomitant]
  4. PROTONIX [Concomitant]

REACTIONS (1)
  - ABDOMINAL PAIN UPPER [None]
